FAERS Safety Report 8160535-5 (Version None)
Quarter: 2012Q1

REPORT INFORMATION
  Report Type: 
  Country: None (occurrence: None)
  Receive Date: 20120223
  Receipt Date: 20120216
  Transmission Date: 20120608
  Serious: Yes (Other)
  Sender: FDA-Public Use
  Company Number: US-ABBOTT-09P-163-0612981-00

PATIENT
  Age: 51 Year
  Sex: Male

DRUGS (11)
  1. MULTI-VITAMIN [Concomitant]
     Indication: VITAMIN SUPPLEMENTATION
  2. SELENIUM [Concomitant]
     Indication: SUPPLEMENTATION THERAPY
  3. LOVAZA [Concomitant]
     Indication: SUPPLEMENTATION THERAPY
  4. CALCIUM [Concomitant]
     Indication: MINERAL SUPPLEMENTATION
  5. ENTOCORT EC [Suspect]
     Indication: PRODUCT USED FOR UNKNOWN INDICATION
  6. BETA CAROTENE [Concomitant]
     Indication: SUPPLEMENTATION THERAPY
  7. MERCAPTOPURINE [Concomitant]
     Indication: PRODUCT USED FOR UNKNOWN INDICATION
  8. VITAMIN B-12 [Concomitant]
     Indication: SUPPLEMENTATION THERAPY
  9. FOLIC ACID [Concomitant]
     Indication: VITAMIN SUPPLEMENTATION
  10. HUMIRA [Suspect]
     Indication: CROHN'S DISEASE
     Dates: start: 20060101, end: 20120101
  11. VIT E [Concomitant]
     Indication: SUPPLEMENTATION THERAPY

REACTIONS (19)
  - RASH ERYTHEMATOUS [None]
  - HAEMORRHAGE [None]
  - ACNE [None]
  - CROHN'S DISEASE [None]
  - SKIN HAEMORRHAGE [None]
  - FEELING HOT [None]
  - DUODENAL STENOSIS [None]
  - DRUG INEFFECTIVE [None]
  - PURULENT DISCHARGE [None]
  - BLISTER [None]
  - ERYTHEMA [None]
  - SKIN ATROPHY [None]
  - SKIN FISSURES [None]
  - SCAB [None]
  - STOMATITIS [None]
  - EXFOLIATIVE RASH [None]
  - CONDITION AGGRAVATED [None]
  - OTITIS EXTERNA [None]
  - PSORIASIS [None]
